FAERS Safety Report 8107315 (Version 3)
Quarter: 2013Q4

REPORT INFORMATION
  Report Type: Spontaneous
  Country: US (occurrence: US)
  Receive Date: 20110825
  Receipt Date: 20131126
  Transmission Date: 20140711
  Serious: Yes (Hospitalization, Other)
  Sender: FDA-Public Use
  Company Number: US-BAYER-2011-075361

PATIENT
  Age: 26 Year
  Sex: Female
  Weight: 83 kg

DRUGS (10)
  1. YAZ [Suspect]
     Indication: CONTRACEPTION
     Dosage: UNK
     Dates: start: 2006, end: 2008
  2. ALBUTEROL [Concomitant]
     Indication: ASTHMA
     Dosage: UNK
     Route: 055
     Dates: start: 2001, end: 2011
  3. LEXAPRO [Concomitant]
     Indication: DEPRESSION
     Dosage: UNK
     Route: 048
     Dates: start: 2006, end: 2010
  4. MOTRIN [Concomitant]
     Dosage: UNK
     Route: 048
     Dates: start: 2001, end: 2011
  5. ALEVE [Concomitant]
     Dosage: UNK
     Route: 048
     Dates: start: 2001, end: 2011
  6. ACETYLSALICYLIC ACID (} 100MG) [Concomitant]
     Dosage: UNK
     Route: 048
     Dates: start: 2001, end: 2011
  7. DARVOCET [Concomitant]
     Dosage: 100-650 MG
  8. CIPROFLOXACIN [Concomitant]
     Dosage: 500 MG, UNK
  9. PROMETHAZINE [Concomitant]
     Dosage: 25 MG, UNK
  10. VENTOLIN [Concomitant]

REACTIONS (5)
  - Gallbladder injury [None]
  - Cholecystitis chronic [None]
  - Injury [None]
  - Pain [None]
  - Mental disorder [None]
